FAERS Safety Report 15222314 (Version 1)
Quarter: 2018Q3

REPORT INFORMATION
  Report Type: Spontaneous
  Country: US (occurrence: US)
  Receive Date: 20180731
  Receipt Date: 20180731
  Transmission Date: 20181010
  Serious: No
  Sender: FDA-Public Use
  Company Number: US-ENDO PHARMACEUTICALS INC-2017-007885

PATIENT
  Sex: Female
  Weight: 76.2 kg

DRUGS (5)
  1. ADRENALIN [Suspect]
     Active Substance: EPINEPHRINE
     Indication: ANGIOEDEMA
     Dosage: UNK UNK, UNKNOWN
     Route: 065
     Dates: start: 2017
  2. SOLU?MEDROL [Suspect]
     Active Substance: METHYLPREDNISOLONE SODIUM SUCCINATE
     Indication: ANGIOEDEMA
     Dosage: UNK UNK, UNKNOWN
     Route: 065
     Dates: start: 2017
  3. PREDNISONE TABLETS [Suspect]
     Active Substance: PREDNISONE
     Indication: ANGIOEDEMA
     Dosage: UNK UNK, UNKNOWN
     Route: 065
     Dates: start: 2017
  4. DECADRON [Suspect]
     Active Substance: DEXAMETHASONE
     Indication: ANGIOEDEMA
     Dosage: UNK UNK, UNKNOWN
     Route: 065
     Dates: start: 2017
  5. XELJANZ XR [Suspect]
     Active Substance: TOFACITINIB CITRATE
     Indication: RHEUMATOID ARTHRITIS
     Dosage: 11 MG, OD
     Route: 048
     Dates: start: 2016

REACTIONS (2)
  - Swelling face [Not Recovered/Not Resolved]
  - Blood cholesterol increased [Not Recovered/Not Resolved]

NARRATIVE: CASE EVENT DATE: 2017
